FAERS Safety Report 19096550 (Version 1)
Quarter: 2021Q2

REPORT INFORMATION
  Report Type: Spontaneous
  Country: US (occurrence: US)
  Receive Date: 20210405
  Receipt Date: 20210405
  Transmission Date: 20210717
  Serious: Yes (Hospitalization)
  Sender: FDA-Public Use
  Company Number: None

PATIENT
  Age: 57 Year
  Sex: Male

DRUGS (9)
  1. TACROLIMUS. [Concomitant]
     Active Substance: TACROLIMUS
  2. VITAMIN D [Concomitant]
     Active Substance: VITAMIN D NOS
  3. CELLCEPT [Suspect]
     Active Substance: MYCOPHENOLATE MOFETIL\MYCOPHENOLATE MOFETIL HYDROCHLORIDE
     Indication: RENAL TRANSPLANT
     Route: 048
     Dates: start: 20210204
  4. CEPHALEXIN. [Concomitant]
     Active Substance: CEPHALEXIN
  5. HUMULIN NOS [Concomitant]
     Active Substance: INSULIN HUMAN
  6. HYDROCHLOROTHIAZIDE. [Concomitant]
     Active Substance: HYDROCHLOROTHIAZIDE
  7. HUMALOG [Concomitant]
     Active Substance: INSULIN LISPRO
  8. CARVEDILOL. [Concomitant]
     Active Substance: CARVEDILOL
  9. DEXILANT [Concomitant]
     Active Substance: DEXLANSOPRAZOLE

REACTIONS (3)
  - Urinary tract infection [None]
  - Fatigue [None]
  - Constipation [None]
